FAERS Safety Report 11445669 (Version 1)
Quarter: 2015Q3

REPORT INFORMATION
  Report Type: Spontaneous
  Country: US (occurrence: None)
  Receive Date: 20150901
  Receipt Date: 20150901
  Transmission Date: 20151125
  Serious: Yes (Hospitalization)
  Sender: FDA-Public Use
  Company Number: None

PATIENT
  Age: 27 Year
  Sex: Female
  Weight: 95.26 kg

DRUGS (1)
  1. ABILIFY [Suspect]
     Active Substance: ARIPIPRAZOLE
     Dosage: 1 TABLET QHS/BEDTIME ORAL
     Route: 048

REACTIONS (8)
  - Depression [None]
  - Unevaluable event [None]
  - Product substitution issue [None]
  - Product quality issue [None]
  - Nausea [None]
  - Hot flush [None]
  - Bipolar I disorder [None]
  - Suicidal ideation [None]

NARRATIVE: CASE EVENT DATE: 20150602
